FAERS Safety Report 13413036 (Version 1)
Quarter: 2017Q2

REPORT INFORMATION
  Report Type: Report from Study
  Country: None (occurrence: US)
  Receive Date: 20170407
  Receipt Date: 20170407
  Transmission Date: 20170830
  Serious: Yes (Other)
  Sender: FDA-Public Use
  Company Number: US-ABBVIE-17K-163-1929580-00

PATIENT
  Age: 35 Year
  Sex: Female

DRUGS (1)
  1. HUMIRA [Suspect]
     Active Substance: ADALIMUMAB
     Indication: RHEUMATOID ARTHRITIS
     Route: 058

REACTIONS (2)
  - Joint debridement [Unknown]
  - Basal cell carcinoma [Unknown]

NARRATIVE: CASE EVENT DATE: 201703
